FAERS Safety Report 7955359-5 (Version None)
Quarter: 2011Q4

REPORT INFORMATION
  Report Type: 
  Country: None (occurrence: None)
  Receive Date: 20111202
  Receipt Date: 20111126
  Transmission Date: 20120403
  Serious: Yes (Other)
  Sender: FDA-Public Use
  Company Number: US-CEPHALON-US008578

PATIENT
  Age: 38 Year
  Sex: Male

DRUGS (3)
  1. GABITRIL [Suspect]
     Indication: COMPLEX PARTIAL SEIZURES
     Route: 048
     Dates: start: 19980501
  2. NEURONTIN [Concomitant]
     Indication: NEURALGIA
  3. TEGRETOL [Concomitant]
     Indication: COMPLEX PARTIAL SEIZURES

REACTIONS (5)
  - CONFUSIONAL STATE [None]
  - CONVULSION [None]
  - BLOOD CREATINE PHOSPHOKINASE INCREASED [None]
  - DRUG INEFFECTIVE [None]
  - DIZZINESS [None]
